FAERS Safety Report 7204060-4 (Version None)
Quarter: 2010Q4

REPORT INFORMATION
  Report Type: 
  Country: None (occurrence: None)
  Receive Date: 20101230
  Receipt Date: 20101221
  Transmission Date: 20110411
  Serious: Yes (Other)
  Sender: FDA-Public Use
  Company Number: KR-ELI_LILLY_AND_COMPANY-KR201012001468

PATIENT
  Age: 22 Year
  Sex: Male
  Weight: 50 kg

DRUGS (2)
  1. DULOXETINE HYDROCHLORIDE [Suspect]
     Indication: MAJOR DEPRESSION
     Dosage: 30 MG, DAILY (1/D)
     Route: 048
     Dates: start: 20100401, end: 20100422
  2. DULOXETINE HYDROCHLORIDE [Suspect]
     Dosage: 60 MG, UNKNOWN
     Route: 048
     Dates: start: 20100423, end: 20100511

REACTIONS (1)
  - JAUNDICE [None]
